FAERS Safety Report 9026351 (Version 2)
Quarter: 2013Q1

REPORT INFORMATION
  Report Type: Spontaneous
  Country: GB (occurrence: None)
  Receive Date: 20121211
  Receipt Date: 20121221
  Transmission Date: 20140127
  Serious: Yes (Other)
  Sender: FDA-Public Use
  Company Number: AUR-APL-2012-05171

PATIENT
  Sex: Female

DRUGS (5)
  1. QUETIAPINE [Suspect]
  2. DOMPERIDONE [Suspect]
     Route: 048
  3. NITRAZEPAM [Concomitant]
  4. PROZAC [Concomitant]
  5. SOLPADOL [Concomitant]

REACTIONS (3)
  - Abnormal behaviour [None]
  - Epilepsy [None]
  - Confusional state [None]
